FAERS Safety Report 13023597 (Version 1)
Quarter: 2016Q4

REPORT INFORMATION
  Report Type: Spontaneous
  Country: US (occurrence: US)
  Receive Date: 20161212
  Receipt Date: 20161212
  Transmission Date: 20170207
  Serious: Yes (Life-Threatening, Hospitalization)
  Sender: FDA-Public Use
  Company Number: None

PATIENT
  Age: 67 Year
  Sex: Male
  Weight: 99 kg

DRUGS (2)
  1. ELIQUIS [Suspect]
     Active Substance: APIXABAN
     Indication: POSTOPERATIVE CARE
     Dosage: ?          QUANTITY:1 TABLET(S);?
     Dates: start: 20160624, end: 20160923
  2. ELIQUIS [Suspect]
     Active Substance: APIXABAN
     Indication: CARDIAC OPERATION
     Dosage: ?          QUANTITY:1 TABLET(S);?
     Dates: start: 20160624, end: 20160923

REACTIONS (3)
  - Treatment failure [None]
  - Pulmonary thrombosis [None]
  - Thrombosis [None]

NARRATIVE: CASE EVENT DATE: 20160923
